FAERS Safety Report 5598645-9 (Version None)
Quarter: 2008Q1

REPORT INFORMATION
  Report Type: 
  Country: None (occurrence: None)
  Receive Date: 20080117
  Receipt Date: 20080108
  Transmission Date: 20080703
  Serious: Yes (Other)
  Sender: FDA-Public Use
  Company Number: 18157

PATIENT
  Age: 4 Year
  Sex: Female

DRUGS (9)
  1. METHOTREXATE [Suspect]
     Indication: ACUTE GRAFT VERSUS HOST DISEASE
     Dosage: 5 MG/M2
  2. METHOTREXATE [Suspect]
     Indication: PROPHYLAXIS AGAINST GRAFT VERSUS HOST DISEASE
     Dosage: 5 MG/M2
  3. METHOTREXATE [Suspect]
     Indication: ACUTE GRAFT VERSUS HOST DISEASE
  4. METHOTREXATE [Suspect]
     Indication: PROPHYLAXIS AGAINST GRAFT VERSUS HOST DISEASE
  5. ETOPOSIDE [Suspect]
     Indication: STEM CELL TRANSPLANT
     Dosage: 60 MG/KG
  6. TBI [Suspect]
     Indication: STEM CELL TRANSPLANT
  7. ATG /00233401/. MFR: NOT SPECIFIED [Suspect]
     Indication: STEM CELL TRANSPLANT
     Dosage: 60 MG/KG
  8. CYCLOSPORINE [Suspect]
     Indication: PROPHYLAXIS AGAINST GRAFT VERSUS HOST DISEASE
  9. STEROIDS [Concomitant]

REACTIONS (2)
  - EPSTEIN-BARR VIRUS INFECTION [None]
  - MUCOSAL INFLAMMATION [None]
